FAERS Safety Report 10304968 (Version 1)
Quarter: 2014Q3

REPORT INFORMATION
  Report Type: Spontaneous
  Country: AU (occurrence: None)
  Receive Date: 20140710
  Receipt Date: 20140710
  Transmission Date: 20150326
  Serious: Yes (Other)
  Sender: FDA-Public Use
  Company Number: 2419349

PATIENT
  Age: 57 Year
  Sex: Female
  Weight: 60 kg

DRUGS (12)
  1. IRINOTECAN HYDROCHLORIDE. [Suspect]
     Active Substance: IRINOTECAN HYDROCHLORIDE
     Indication: PANCREATIC CARCINOMA
     Dates: start: 20140619, end: 20140619
  2. 5-FU [Concomitant]
     Active Substance: FLUOROURACIL
  3. APREPITANT [Concomitant]
     Active Substance: APREPITANT
  4. GLUCOSE [Concomitant]
     Active Substance: DEXTROSE
  5. ATROPINE [Concomitant]
     Active Substance: ATROPINE
     Indication: ABDOMINAL PAIN UPPER
  6. DEXAMETHASONE. [Concomitant]
     Active Substance: DEXAMETHASONE
  7. OXALIPLATIN. [Concomitant]
     Active Substance: OXALIPLATIN
  8. OTHER THERAPEUTIC PRODUCTS [Concomitant]
     Active Substance: UNSPECIFIED INGREDIENT
  9. PALONOSETRON [Concomitant]
     Active Substance: PALONOSETRON
  10. METOCLOPRAMIDE. [Concomitant]
     Active Substance: METOCLOPRAMIDE
  11. HYDROCORTISONE. [Concomitant]
     Active Substance: HYDROCORTISONE
  12. NORMAL SALINE [Concomitant]
     Active Substance: SODIUM CHLORIDE

REACTIONS (1)
  - Transient ischaemic attack [None]

NARRATIVE: CASE EVENT DATE: 20140619
